FAERS Safety Report 19861448 (Version 1)
Quarter: 2021Q3

REPORT INFORMATION
  Report Type: Spontaneous
  Country: US (occurrence: US)
  Receive Date: 20210921
  Receipt Date: 20210921
  Transmission Date: 20211014
  Serious: Yes (Other)
  Sender: FDA-Public Use
  Company Number: US-ASTELLAS-2021US034991

PATIENT
  Age: 29 Year
  Sex: Female

DRUGS (3)
  1. PREDNISONE. [Concomitant]
     Active Substance: PREDNISONE
     Indication: SMALL INTESTINE TRANSPLANT
     Route: 065
  2. EVEROLIMUS. [Concomitant]
     Active Substance: EVEROLIMUS
     Indication: SMALL INTESTINE TRANSPLANT
     Dosage: 0.75 MG, ONCE DAILY
     Route: 065
  3. TACROLIMUS. [Suspect]
     Active Substance: TACROLIMUS
     Indication: SMALL INTESTINE TRANSPLANT
     Route: 065

REACTIONS (3)
  - Gastrointestinal tract adenoma [Recovered/Resolved]
  - Rectal polyp [Recovered/Resolved]
  - Duodenal polyp [Recovered/Resolved]
